FAERS Safety Report 4342379-5 (Version None)
Quarter: 2004Q2

REPORT INFORMATION
  Report Type: 
  Country: None (occurrence: None)
  Receive Date: 20040421
  Receipt Date: 20040412
  Transmission Date: 20050107
  Serious: Yes (Other)
  Sender: FDA-Public Use
  Company Number: PHBS2004BR04956

PATIENT
  Age: 42 Year
  Sex: Female
  Weight: 68 kg

DRUGS (1)
  1. TEGRETOL [Suspect]
     Indication: BIPOLAR DISORDER
     Dosage: 400 MG, BID
     Route: 048

REACTIONS (2)
  - EPISTAXIS [None]
  - GINGIVAL BLEEDING [None]
